FAERS Safety Report 21904666 (Version 5)
Quarter: 2024Q4

REPORT INFORMATION
  Report Type: Spontaneous
  Country: US (occurrence: US)
  Receive Date: 20230124
  Receipt Date: 20241203
  Transmission Date: 20250115
  Serious: No
  Sender: PFIZER
  Company Number: US-PFIZER INC-202201138280

PATIENT
  Age: 65 Year
  Sex: Female

DRUGS (1)
  1. INLYTA [Suspect]
     Active Substance: AXITINIB
     Indication: Metastases to central nervous system
     Dosage: 5 MG, 2X/DAY (TAKE 1 TABLET BY MOUTH EVERY 12 HRS, WITH OR WITHOUT FOOD WITH FULL GLASS OF WATER)
     Route: 048

REACTIONS (2)
  - Dysgeusia [Unknown]
  - Weight decreased [Unknown]
